FAERS Safety Report 5254845-9 (Version None)
Quarter: 2007Q1

REPORT INFORMATION
  Report Type: 
  Country: None (occurrence: None)
  Receive Date: 20070302
  Receipt Date: 20070302
  Transmission Date: 20070707
  Serious: Yes (Hospitalization)
  Sender: FDA-Public Use
  Company Number: None

PATIENT
  Age: 64 Year
  Sex: Female
  Weight: 61 kg

DRUGS (6)
  1. PRINZIDE [Suspect]
     Indication: HYPERTENSION
     Dosage: LISINOPRIL 20MG/HCTZ 25MG DAILY PO
     Route: 048
  2. ZOCOR [Concomitant]
  3. NORVASC [Concomitant]
  4. ARICEPT [Concomitant]
  5. ASPIRIN [Concomitant]
  6. VITAMIN E [Concomitant]

REACTIONS (1)
  - ANGIOEDEMA [None]
